FAERS Safety Report 9601669 (Version 1)
Quarter: 2013Q4

REPORT INFORMATION
  Report Type: Spontaneous
  Country: GB (occurrence: None)
  Receive Date: 20131002
  Receipt Date: 20131002
  Transmission Date: 20140711
  Serious: Yes (Hospitalization)
  Sender: FDA-Public Use
  Company Number: AUR-APL-2013-07911

PATIENT
  Age: 1 Year
  Sex: Female
  Weight: 10 kg

DRUGS (3)
  1. AMOXICILLIN (AMOXICILLIN) [Suspect]
     Indication: EAR INFECTION
     Dosage: (500 MG, 4 IN 1 D)
     Route: 048
     Dates: start: 20130821, end: 20130828
  2. IBUPROFEN (IBUPROFEN) [Concomitant]
  3. PARACETAMOL (PARACETAMOL) [Concomitant]

REACTIONS (7)
  - Urticaria [None]
  - Vomiting [None]
  - Pyrexia [None]
  - Rash erythematous [None]
  - Swelling [None]
  - Contusion [None]
  - Erythema multiforme [None]
